FAERS Safety Report 7936164-2 (Version None)
Quarter: 2011Q4

REPORT INFORMATION
  Report Type: 
  Country: None (occurrence: None)
  Receive Date: 20111123
  Receipt Date: 20111118
  Transmission Date: 20120403
  Serious: Yes (Death)
  Sender: FDA-Public Use
  Company Number: JP-PFIZER INC-2011285793

PATIENT
  Age: 90 Year
  Sex: Female
  Weight: 56.9 kg

DRUGS (9)
  1. URSO 250 [Concomitant]
     Dosage: UNK
     Route: 048
     Dates: end: 20111014
  2. VILDAGLIPTIN [Concomitant]
     Dosage: UNK
     Route: 048
     Dates: end: 20111014
  3. MUCOSTA [Concomitant]
     Dosage: UNK
     Route: 048
     Dates: end: 20111014
  4. CELECOXIB [Suspect]
     Indication: ARTHRITIS BACTERIAL
     Dosage: 100 MG, UID/QD
     Route: 048
     Dates: start: 20110811, end: 20111027
  5. MUCODYNE-DS [Concomitant]
     Dosage: UNK
     Dates: end: 20111014
  6. NAFTDIL [Concomitant]
     Dosage: UNK
     Route: 048
     Dates: end: 20111014
  7. TAGAMET [Concomitant]
     Indication: ARTHRITIS BACTERIAL
     Dosage: 200 MG UID
     Route: 048
     Dates: start: 20110811, end: 20111027
  8. DIART [Concomitant]
     Dosage: UNK
     Route: 048
     Dates: end: 20111014
  9. AMARYL [Concomitant]
     Dosage: UNK
     Route: 048
     Dates: end: 20111014

REACTIONS (3)
  - OEDEMA PERIPHERAL [None]
  - RENAL FAILURE [None]
  - CARDIAC FAILURE [None]
